FAERS Safety Report 4282207-X (Version None)
Quarter: 2004Q1

REPORT INFORMATION
  Report Type: 
  Country: None (occurrence: None)
  Receive Date: 20040130
  Receipt Date: 20031120
  Transmission Date: 20041129
  Serious: Yes (Other)
  Sender: FDA-Public Use
  Company Number: IE-GLAXOSMITHKLINE-B0315802A

PATIENT
  Sex: Female

DRUGS (2)
  1. LAMICTAL [Suspect]
     Indication: BIPOLAR DISORDER
  2. SODIUM VALPROATE [Suspect]
     Indication: BIPOLAR DISORDER

REACTIONS (1)
  - LOSS OF CONSCIOUSNESS [None]
